FAERS Safety Report 12908197 (Version 1)
Quarter: 2016Q4

REPORT INFORMATION
  Report Type: Spontaneous
  Country: US (occurrence: US)
  Receive Date: 20161103
  Receipt Date: 20161103
  Transmission Date: 20170207
  Serious: Yes (Hospitalization)
  Sender: FDA-Public Use
  Company Number: US-SAGENTPRD-2016-US-000041

PATIENT
  Age: 32 Year
  Sex: Male

DRUGS (9)
  1. TOPOTECAN [Concomitant]
     Active Substance: TOPOTECAN HYDROCHLORIDE
  2. VINCRISTINE [Concomitant]
     Active Substance: VINCRISTINE
  3. PIRARUBICIN [Concomitant]
     Active Substance: PIRARUBICIN
  4. PAZOPANIB [Concomitant]
     Active Substance: PAZOPANIB
  5. CYCLOPHOSPHAMIDE. [Concomitant]
     Active Substance: CYCLOPHOSPHAMIDE
  6. DOXORUBICIN HYDROCHLORIDE INJECTION, USP [Suspect]
     Active Substance: DOXORUBICIN HYDROCHLORIDE
     Dosage: UNK
  7. CISPLATIN. [Concomitant]
     Active Substance: CISPLATIN
  8. ETOPOSIDE. [Concomitant]
     Active Substance: ETOPOSIDE
  9. IFOSFAMIDE. [Concomitant]
     Active Substance: IFOSFAMIDE

REACTIONS (6)
  - Hypothyroidism [Unknown]
  - Vomiting [Unknown]
  - Pulmonary oedema [Unknown]
  - Thrombocytopenia [Unknown]
  - Decreased appetite [Unknown]
  - Febrile neutropenia [Unknown]
